FAERS Safety Report 7820056-3 (Version None)
Quarter: 2011Q4

REPORT INFORMATION
  Report Type: 
  Country: None (occurrence: None)
  Receive Date: 20111013
  Receipt Date: 20110929
  Transmission Date: 20120403
  Serious: Yes (Hospitalization)
  Sender: FDA-Public Use
  Company Number: 2011-1636

PATIENT
  Age: 46 Year
  Sex: Male

DRUGS (10)
  1. MIRTAZAPINE [Concomitant]
  2. KEPPRA [Concomitant]
  3. VALPROIC ACID [Concomitant]
  4. LEVETIRACETAM [Concomitant]
  5. CITALOPRAM [Concomitant]
  6. TIAPRIDEX (TIAPRIDE) [Concomitant]
  7. BOTULINUM TOXIN TYPE A [Suspect]
     Indication: OFF LABEL USE
     Dosage: CYCLICAL
     Dates: start: 20090101
  8. BOTULINUM TOXIN TYPE A [Suspect]
     Indication: DYSTONIA
     Dosage: CYCLICAL
     Dates: start: 20090101
  9. CALCILAC (LEKOVIT CA) [Concomitant]
  10. TIMONIL (CARBAMAZEPINE) [Concomitant]

REACTIONS (1)
  - EPILEPSY [None]
